FAERS Safety Report 6562325-3 (Version None)
Quarter: 2010Q1

REPORT INFORMATION
  Report Type: 
  Country: None (occurrence: None)
  Receive Date: 20100130
  Receipt Date: 20091103
  Transmission Date: 20100710
  Serious: Yes (Hospitalization)
  Sender: FDA-Public Use
  Company Number: US-ABBOTT-09P-163-0606647-00

PATIENT
  Sex: Female
  Weight: 141.65 kg

DRUGS (20)
  1. HUMIRA [Suspect]
     Indication: CROHN'S DISEASE
     Dosage: FIRST DOSE
     Dates: start: 20091028
  2. PENTASA [Concomitant]
     Indication: DRUG USE FOR UNKNOWN INDICATION
     Route: 048
  3. PRILOSEC [Concomitant]
     Indication: DRUG USE FOR UNKNOWN INDICATION
  4. GABAPENTIN [Concomitant]
     Indication: DRUG USE FOR UNKNOWN INDICATION
  5. ZOLOFT [Concomitant]
     Indication: DRUG USE FOR UNKNOWN INDICATION
  6. REGLAN [Concomitant]
     Indication: DRUG USE FOR UNKNOWN INDICATION
  7. ZOFRAN [Concomitant]
     Indication: DRUG USE FOR UNKNOWN INDICATION
     Dosage: 6 HR PRN
     Route: 060
  8. KLONOPIN [Concomitant]
     Indication: DRUG USE FOR UNKNOWN INDICATION
  9. SEROQUEL [Concomitant]
     Indication: DRUG USE FOR UNKNOWN INDICATION
  10. PHENERGAN HCL [Concomitant]
     Indication: DRUG USE FOR UNKNOWN INDICATION
     Dosage: Q 4-6 PRN
  11. ZOCOR [Concomitant]
     Indication: BLOOD CHOLESTEROL INCREASED
  12. LOMOTIL [Concomitant]
     Indication: DRUG USE FOR UNKNOWN INDICATION
     Dosage: PRN
  13. LEVBID [Concomitant]
     Indication: DRUG USE FOR UNKNOWN INDICATION
  14. QUESTRAN [Concomitant]
     Indication: DRUG USE FOR UNKNOWN INDICATION
     Dosage: 1 UP TO TID PRN
  15. PREDNISONE [Concomitant]
     Indication: DRUG USE FOR UNKNOWN INDICATION
     Dosage: DECREASING DOSE
  16. KEFLEX [Concomitant]
     Indication: DRUG USE FOR UNKNOWN INDICATION
  17. VENTOLIN [Concomitant]
     Indication: DRUG USE FOR UNKNOWN INDICATION
     Dosage: 90 MCG 2 PUFFS BID
  18. FLOVENT [Concomitant]
     Indication: DRUG USE FOR UNKNOWN INDICATION
     Dosage: 110 MCG Q 12 2 PUFFS
  19. CLOTRIMAZOLE [Concomitant]
     Indication: FUNGAL SKIN INFECTION
  20. DIFLUCAN [Concomitant]
     Indication: DRUG USE FOR UNKNOWN INDICATION

REACTIONS (2)
  - CROHN'S DISEASE [None]
  - INJECTION SITE HAEMATOMA [None]
